FAERS Safety Report 9204291 (Version 1)
Quarter: 2013Q2

REPORT INFORMATION
  Report Type: Spontaneous
  Country: US (occurrence: None)
  Receive Date: 20130401
  Receipt Date: 20130401
  Transmission Date: 20140414
  Serious: No
  Sender: FDA-Public Use
  Company Number: None

PATIENT
  Sex: 0

DRUGS (1)
  1. ATORVASTATIN [Suspect]
     Dates: start: 20130302, end: 20130304

REACTIONS (8)
  - Product odour abnormal [None]
  - Product taste abnormal [None]
  - Product tampering [None]
  - Product contamination [None]
  - Product container seal issue [None]
  - Product shape issue [None]
  - Product substitution issue [None]
  - Product quality issue [None]
